FAERS Safety Report 6361471-7 (Version None)
Quarter: 2009Q3

REPORT INFORMATION
  Report Type: 
  Country: None (occurrence: None)
  Receive Date: 20090918
  Receipt Date: 20090903
  Transmission Date: 20100115
  Serious: Yes (Hospitalization, Other)
  Sender: FDA-Public Use
  Company Number: FR-CELGENEUS-056-21880-09091301

PATIENT
  Sex: Female
  Weight: 63 kg

DRUGS (6)
  1. REVLIMID [Suspect]
     Indication: MULTIPLE MYELOMA
     Route: 048
     Dates: start: 20090623, end: 20090728
  2. KARDEGIC [Concomitant]
     Indication: DRUG USE FOR UNKNOWN INDICATION
     Route: 065
     Dates: end: 20090711
  3. DEXAMETHASONE [Concomitant]
     Indication: MULTIPLE MYELOMA
     Route: 048
     Dates: start: 20060623
  4. NEORECORMON [Concomitant]
     Route: 058
     Dates: start: 20090519, end: 20090720
  5. LYRICA [Concomitant]
     Route: 048
     Dates: start: 20090509, end: 20090720
  6. ASPEGIC 1000 [Concomitant]
     Indication: THROMBOSIS PROPHYLAXIS
     Route: 048
     Dates: start: 20090512, end: 20090720

REACTIONS (3)
  - HAEMOGLOBIN DECREASED [None]
  - PERIRENAL HAEMATOMA [None]
  - RENAL FAILURE [None]
